FAERS Safety Report 24000014 (Version 2)
Quarter: 2024Q2

REPORT INFORMATION
  Report Type: Spontaneous
  Country: CN (occurrence: None)
  Receive Date: 20240621
  Receipt Date: 20240627
  Transmission Date: 20240716
  Serious: Yes (Other)
  Sender: FDA-Public Use
  Company Number: 2024A141828

PATIENT
  Age: 68 Year
  Sex: Female

DRUGS (1)
  1. OSIMERTINIB [Suspect]
     Active Substance: OSIMERTINIB
     Indication: Lung adenocarcinoma
     Route: 048
     Dates: start: 202012, end: 202208

REACTIONS (5)
  - Acquired gene mutation [Unknown]
  - Drug resistance [Unknown]
  - Malignant neoplasm progression [Unknown]
  - Nausea [Unknown]
  - Rash [Unknown]
